FAERS Safety Report 9636351 (Version 1)
Quarter: 2013Q4

REPORT INFORMATION
  Report Type: Spontaneous
  Country: JP (occurrence: JP)
  Receive Date: 20131021
  Receipt Date: 20131021
  Transmission Date: 20140711
  Serious: Yes (Other)
  Sender: FDA-Public Use
  Company Number: JP-TEVA-437962ISR

PATIENT
  Age: 23 Year
  Sex: Female

DRUGS (3)
  1. PREDNISOLONE [Suspect]
     Dosage: 750 MG/MONTH JUST BEFORE SURGERY
     Route: 065
  2. CICLOSPORIN [Concomitant]
     Route: 065
  3. WARFARIN [Concomitant]
     Indication: PORTAL VEIN THROMBOSIS
     Route: 065

REACTIONS (2)
  - Pouchitis [Unknown]
  - Steroid withdrawal syndrome [Unknown]
